FAERS Safety Report 14875648 (Version 2)
Quarter: 2018Q2

REPORT INFORMATION
  Report Type: Report from Study
  Country: MX (occurrence: MX)
  Receive Date: 20180510
  Receipt Date: 20180523
  Transmission Date: 20180711
  Serious: Yes (Other)
  Sender: FDA-Public Use
  Company Number: MX-UCBSA-2018019247

PATIENT
  Age: 28 Day
  Sex: Male

DRUGS (4)
  1. LEVETIRACETAM. [Suspect]
     Active Substance: LEVETIRACETAM
     Indication: OFF LABEL USE
     Dosage: 0.7 ML, 2X/DAY (BID)
     Route: 048
     Dates: start: 2017, end: 201712
  2. BIOGAIA [Concomitant]
     Active Substance: LACTOBACILLUS REUTERI
     Indication: ABDOMINAL DISCOMFORT
  3. LEVETIRACETAM. [Suspect]
     Active Substance: LEVETIRACETAM
     Dosage: 1 ML, 2X/DAY (BID)
     Route: 048
     Dates: start: 201712
  4. LEVETIRACETAM. [Suspect]
     Active Substance: LEVETIRACETAM
     Indication: CONVULSION PROPHYLAXIS
     Dosage: 0.5 ML, 2X/DAY (BID)100 MG/ ML
     Route: 048
     Dates: start: 201708, end: 201709

REACTIONS (2)
  - Off label use [Unknown]
  - Strabismus [Recovered/Resolved]

NARRATIVE: CASE EVENT DATE: 201708
